FAERS Safety Report 18937923 (Version 1)
Quarter: 2021Q1

REPORT INFORMATION
  Report Type: Other
  Country: US (occurrence: US)
  Receive Date: 20210225
  Receipt Date: 20210225
  Transmission Date: 20210420
  Serious: Yes (Hospitalization)
  Sender: FDA-Public Use
  Company Number: US-B.BRAUN MEDICAL INC.-2107320

PATIENT
  Age: 31 Year
  Sex: Male

DRUGS (1)
  1. CEFAZOLIN FOR INJECTION USP AND DEXTROSE INJECTION USP 0264?3103?11 (N [Suspect]
     Active Substance: CEFAZOLIN
     Route: 042

REACTIONS (1)
  - Hallucination [None]
